FAERS Safety Report 9106493 (Version 1)
Quarter: 2013Q1

REPORT INFORMATION
  Report Type: Spontaneous
  Country: RU (occurrence: RU)
  Receive Date: 20130221
  Receipt Date: 20130221
  Transmission Date: 20140127
  Serious: Yes (Death, Hospitalization)
  Sender: FDA-Public Use
  Company Number: RU-B.I. PHARMACEUTICALS,INC./RIDGEFIELD-2013-AP-00133AP

PATIENT
  Age: 85 None
  Sex: Male

DRUGS (1)
  1. PRADAXA [Suspect]
     Indication: ATRIAL FIBRILLATION
     Dosage: 220 MG
     Route: 048
     Dates: start: 201112, end: 20130130

REACTIONS (4)
  - Cardiopulmonary failure [Fatal]
  - Bronchopneumonia [Not Recovered/Not Resolved]
  - Dyspnoea [Unknown]
  - Idiopathic pulmonary fibrosis [Unknown]
